APPROVED DRUG PRODUCT: SILODOSIN
Active Ingredient: SILODOSIN
Strength: 8MG
Dosage Form/Route: CAPSULE;ORAL
Application: A206541 | Product #002 | TE Code: AB
Applicant: LUPIN LTD
Approved: Dec 3, 2018 | RLD: No | RS: No | Type: RX